FAERS Safety Report 4388409-6 (Version None)
Quarter: 2004Q3

REPORT INFORMATION
  Report Type: 
  Country: None (occurrence: None)
  Receive Date: 20040701
  Receipt Date: 20030623
  Transmission Date: 20050211
  Serious: Yes (Other)
  Sender: FDA-Public Use
  Company Number: BR-ROCHE-340895

PATIENT
  Age: 36 Year
  Sex: Female
  Weight: 70.2 kg

DRUGS (10)
  1. DACLIZUMAB [Suspect]
     Route: 042
     Dates: start: 20030528, end: 20030528
  2. DACLIZUMAB [Suspect]
     Route: 042
     Dates: start: 20030611
  3. MYCOPHENOLATE MOFETIL [Suspect]
     Route: 048
     Dates: start: 20030528, end: 20030621
  4. RAPAMUNE [Suspect]
     Dosage: LOADING DOSE: 6MG/DAY PO MAINTENANCE DOSE: 2MG/DAY PO, REDUCED TO 1MG/DAY PO AND REDUCED TO 0.5MG/D+
     Route: 048
     Dates: start: 20030528, end: 20030621
  5. PREDNISONE [Suspect]
     Route: 048
     Dates: start: 20030528
  6. IMIPENEM [Concomitant]
     Route: 042
     Dates: start: 20030620
  7. PROPRANOLOL [Concomitant]
     Route: 048
     Dates: start: 20030620
  8. MINOXIDIL [Concomitant]
     Route: 048
     Dates: start: 20030616
  9. OMEPRAZOLE [Concomitant]
     Route: 042
     Dates: start: 20030530
  10. CLONIDINE HCL [Concomitant]
     Route: 048
     Dates: start: 20030516

REACTIONS (1)
  - PANCYTOPENIA [None]
